FAERS Safety Report 9282339 (Version 1)
Quarter: 2013Q2

REPORT INFORMATION
  Report Type: Spontaneous
  Country: US (occurrence: US)
  Receive Date: 20130510
  Receipt Date: 20130510
  Transmission Date: 20140414
  Serious: Yes (Hospitalization)
  Sender: FDA-Public Use
  Company Number: US-SUN PHARMACEUTICAL INDUSTRIES LTD-2013SUN00559

PATIENT
  Age: 68 Year
  Sex: Female

DRUGS (1)
  1. ALLOPURINOL 100 MG TABLET [Suspect]
     Indication: PRODUCT USED FOR UNKNOWN INDICATION
     Dosage: UNK
     Route: 065

REACTIONS (11)
  - Myocarditis [Recovering/Resolving]
  - Stevens-Johnson syndrome [Recovering/Resolving]
  - Diarrhoea [None]
  - Hyperglycaemia [None]
  - Conduction disorder [None]
  - Coronary artery disease [None]
  - Fluid overload [None]
  - Atrioventricular block complete [None]
  - Pulmonary oedema [None]
  - Myocardial infarction [None]
  - Pneumatosis intestinalis [None]
